FAERS Safety Report 16052723 (Version 2)
Quarter: 2019Q2

REPORT INFORMATION
  Report Type: Report from Study
  Country: US (occurrence: US)
  Receive Date: 20190308
  Receipt Date: 20190503
  Transmission Date: 20190711
  Serious: Yes (Other)
  Sender: FDA-Public Use
  Company Number: US-TEVA-2019-US-1021605

PATIENT
  Sex: Male

DRUGS (6)
  1. MIDODRINE [Concomitant]
     Active Substance: MIDODRINE
  2. ATORVASTATIN [Concomitant]
     Active Substance: ATORVASTATIN
  3. CLOZAPINE TEVA [Suspect]
     Active Substance: CLOZAPINE
     Route: 048
  4. PRENATAL VITAMINS [Concomitant]
     Active Substance: VITAMINS
  5. VITAMIN D2 [Concomitant]
     Active Substance: ERGOCALCIFEROL
  6. SENNA DOCUSATE [Concomitant]
     Dosage: SENNA DOCUSATE  8.5/50MG

REACTIONS (1)
  - Granulocytopenia [Recovered/Resolved]
